FAERS Safety Report 14197224 (Version 1)
Quarter: 2017Q4

REPORT INFORMATION
  Report Type: Spontaneous
  Country: US (occurrence: US)
  Receive Date: 20171116
  Receipt Date: 20171116
  Transmission Date: 20180321
  Serious: No
  Sender: FDA-Public Use
  Company Number: US-BAUSCH-BL-2017-019918

PATIENT
  Sex: Female
  Weight: 64.47 kg

DRUGS (4)
  1. XIFAXAN [Suspect]
     Active Substance: RIFAXIMIN
     Indication: IRRITABLE BOWEL SYNDROME
     Route: 048
     Dates: start: 201601, end: 2016
  2. XIFAXAN [Suspect]
     Active Substance: RIFAXIMIN
     Route: 048
     Dates: start: 201604, end: 2016
  3. PROBIOTICS [Concomitant]
     Active Substance: PROBIOTICS NOS
     Indication: ABDOMINAL DISCOMFORT
  4. XIFAXAN [Suspect]
     Active Substance: RIFAXIMIN
     Route: 048
     Dates: start: 201611

REACTIONS (1)
  - Treatment noncompliance [Unknown]
